FAERS Safety Report 11441012 (Version 1)
Quarter: 2015Q3

REPORT INFORMATION
  Report Type: Spontaneous
  Country: US (occurrence: US)
  Receive Date: 20150821
  Receipt Date: 20150821
  Transmission Date: 20151125
  Serious: No
  Sender: FDA-Public Use
  Company Number: US-ELI_LILLY_AND_COMPANY-USA0507102303

PATIENT
  Sex: Female

DRUGS (6)
  1. ESZOPICLONE. [Concomitant]
     Active Substance: ESZOPICLONE
     Dosage: UNK, UNKNOWN
  2. CYMBALTA [Suspect]
     Active Substance: DULOXETINE HYDROCHLORIDE
     Dosage: 30 MG, UNK
     Dates: end: 2006
  3. REMERON [Concomitant]
     Active Substance: MIRTAZAPINE
  4. CYMBALTA [Suspect]
     Active Substance: DULOXETINE HYDROCHLORIDE
     Indication: DEPRESSION
     Dosage: 30 MG, DAILY (1/D)
     Dates: start: 20050610
  5. CYMBALTA [Suspect]
     Active Substance: DULOXETINE HYDROCHLORIDE
     Dosage: 60 MG, DAILY (1/D)
  6. ATIVAN [Concomitant]
     Active Substance: LORAZEPAM
     Indication: SLEEP DISORDER

REACTIONS (3)
  - Blood glucose decreased [Unknown]
  - Depression [Unknown]
  - Tearfulness [Unknown]

NARRATIVE: CASE EVENT DATE: 2005
